FAERS Safety Report 8563880-4 (Version None)
Quarter: 2012Q3

REPORT INFORMATION
  Report Type: 
  Country: None (occurrence: None)
  Receive Date: 20120727
  Receipt Date: 20120727
  Transmission Date: 20120928
  Serious: No
  Sender: FDA-Public Use
  Company Number: None

PATIENT
  Age: 15 Year
  Sex: Male
  Weight: 82.3 kg

DRUGS (6)
  1. INFLIXIMAB JANSSEN [Suspect]
     Indication: INFLAMMATORY BOWEL DISEASE
     Dosage: 520 MG EVERY 6 WEEKS IV
     Route: 042
     Dates: start: 20111101, end: 20120723
  2. CHOLECALCITEROL [Concomitant]
  3. LOVAZA [Concomitant]
  4. MULTI-VITAMIN [Concomitant]
  5. PENTASA [Concomitant]
  6. FATTY ACIDS [Concomitant]

REACTIONS (4)
  - INFUSION RELATED REACTION [None]
  - FLUSHING [None]
  - DYSPNOEA [None]
  - PARAESTHESIA [None]
